FAERS Safety Report 5649838-3 (Version None)
Quarter: 2008Q1

REPORT INFORMATION
  Report Type: 
  Country: None (occurrence: None)
  Receive Date: 20080304
  Receipt Date: 20080221
  Transmission Date: 20080703
  Serious: Yes (Other)
  Sender: FDA-Public Use
  Company Number: GB-PFIZER INC-2008018191

PATIENT
  Sex: Female

DRUGS (5)
  1. CHANTIX [Suspect]
     Indication: SMOKING CESSATION THERAPY
     Route: 048
  2. IBUPROFEN [Concomitant]
     Indication: BACK PAIN
  3. DIAZEPAM [Concomitant]
  4. CO-DYDRAMOL [Concomitant]
     Dosage: TEXT:10/500 MG
  5. PROPRANOLOL [Concomitant]
     Indication: TREMOR

REACTIONS (6)
  - FEELINGS OF WORTHLESSNESS [None]
  - ILL-DEFINED DISORDER [None]
  - INSOMNIA [None]
  - PARANOIA [None]
  - SMOKER [None]
  - SUICIDAL IDEATION [None]
